FAERS Safety Report 9892624 (Version 1)
Quarter: 2014Q1

REPORT INFORMATION
  Report Type: Spontaneous
  Country: IT (occurrence: IT)
  Receive Date: 20140212
  Receipt Date: 20140212
  Transmission Date: 20141002
  Serious: Yes (Life-Threatening)
  Sender: FDA-Public Use
  Company Number: IT-PFIZER INC-2014038236

PATIENT
  Age: 68 Year
  Sex: 0

DRUGS (3)
  1. AROMASIN [Suspect]
     Indication: BREAST CANCER
     Dosage: 25 MG, 1X/DAY
     Route: 048
     Dates: start: 20131008, end: 20140129
  2. AFINITOR [Suspect]
     Indication: BREAST CANCER
     Dosage: UNK
  3. AFINITOR [Suspect]
     Dosage: UNK

REACTIONS (1)
  - Pneumonitis [Unknown]
